FAERS Safety Report 25210801 (Version 1)
Quarter: 2025Q2

REPORT INFORMATION
  Report Type: Spontaneous
  Country: US (occurrence: US)
  Receive Date: 20250417
  Receipt Date: 20250417
  Transmission Date: 20250716
  Serious: No
  Sender: ABBVIE
  Company Number: US-ABBVIE-6225590

PATIENT
  Sex: Female

DRUGS (1)
  1. BOTOX COSMETIC [Suspect]
     Active Substance: ONABOTULINUMTOXINA
     Indication: Product used for unknown indication
     Route: 065

REACTIONS (6)
  - Infection [Unknown]
  - Swelling face [Unknown]
  - Suspected counterfeit product [Not Recovered/Not Resolved]
  - Mass [Unknown]
  - Injection site pain [Unknown]
  - Stress [Unknown]
